FAERS Safety Report 7300430-4 (Version None)
Quarter: 2011Q1

REPORT INFORMATION
  Report Type: 
  Country: None (occurrence: None)
  Receive Date: 20110217
  Receipt Date: 20110214
  Transmission Date: 20110831
  Serious: Yes (Death, Other)
  Sender: FDA-Public Use
  Company Number: PHHY2011JP08619

PATIENT
  Age: 36 Year
  Sex: Female

DRUGS (3)
  1. MIZORIBINE [Concomitant]
     Indication: RENAL TRANSPLANT
  2. STEROIDS [Concomitant]
     Dosage: UNK
  3. CYCLOPHOSPHAMIDE [Suspect]
     Indication: RENAL TRANSPLANT
     Dosage: UNK

REACTIONS (4)
  - DIFFUSE LARGE B-CELL LYMPHOMA [None]
  - EPSTEIN-BARR VIRUS ASSOCIATED LYMPHOPROLIFERATIVE DISORDER [None]
  - ABDOMINAL PAIN LOWER [None]
  - KIDNEY TRANSPLANT REJECTION [None]
